FAERS Safety Report 24709345 (Version 2)
Quarter: 2025Q1

REPORT INFORMATION
  Report Type: Spontaneous
  Country: IT (occurrence: IT)
  Receive Date: 20241208
  Receipt Date: 20250213
  Transmission Date: 20250408
  Serious: Yes (Hospitalization, Other)
  Sender: CIPLA
  Company Number: IT-EMA-20241123-AUTODUP-1732326626135

PATIENT

DRUGS (13)
  1. VALGANCICLOVIR [Suspect]
     Active Substance: VALGANCICLOVIR
     Indication: Cytomegalovirus infection
     Dosage: 16 MILLIGRAM/KILOGRAM, BID (16 MG/KG, Q12H)
     Route: 065
  2. VALGANCICLOVIR [Suspect]
     Active Substance: VALGANCICLOVIR
     Dosage: 8 MILLIGRAM/KILOGRAM, BID (8 MG/KG, Q12H)
     Route: 065
  3. RANIBIZUMAB [Suspect]
     Active Substance: RANIBIZUMAB
     Indication: Retinopathy of prematurity
  4. PROPOFOL [Concomitant]
     Active Substance: PROPOFOL
     Indication: Anaesthesia
     Route: 065
  5. KETAMINE [Concomitant]
     Active Substance: KETAMINE
     Indication: Anaesthesia
     Route: 065
  6. AMPICILLIN [Concomitant]
     Active Substance: AMPICILLIN
     Indication: Antibiotic prophylaxis
     Route: 065
  7. FLUCONAZOLE [Concomitant]
     Active Substance: FLUCONAZOLE
     Indication: Antibiotic prophylaxis
     Route: 065
  8. GENTAMICIN [Concomitant]
     Active Substance: GENTAMICIN
     Indication: Antibiotic prophylaxis
     Route: 065
  9. AMIKACIN [Concomitant]
     Active Substance: AMIKACIN
     Indication: Pneumonia
     Route: 065
  10. AMIKACIN [Concomitant]
     Active Substance: AMIKACIN
     Indication: Antibiotic prophylaxis
  11. VANCOMYCIN [Concomitant]
     Active Substance: VANCOMYCIN
     Indication: Pneumonia
     Route: 065
  12. CEFTAROLINE [Concomitant]
     Active Substance: CEFTAROLINE
     Indication: Pneumonia
     Route: 065
  13. CEFTAROLINE [Concomitant]
     Active Substance: CEFTAROLINE
     Route: 065

REACTIONS (7)
  - Necrotising colitis [Recovering/Resolving]
  - Haematochezia [Recovering/Resolving]
  - Abdominal distension [Recovering/Resolving]
  - Respiratory distress [Recovering/Resolving]
  - Bradycardia [Recovering/Resolving]
  - Neutropenia [Recovering/Resolving]
  - Off label use [Unknown]
